FAERS Safety Report 9772174 (Version 1)
Quarter: 2013Q4

REPORT INFORMATION
  Report Type: Spontaneous
  Country: US (occurrence: None)
  Receive Date: 20131218
  Receipt Date: 20131218
  Transmission Date: 20140711
  Serious: Yes (Disabling, Other)
  Sender: FDA-Public Use
  Company Number: None

PATIENT
  Age: 46 Year
  Sex: Female
  Weight: 80.74 kg

DRUGS (1)
  1. METFORMIN [Suspect]
     Indication: DIABETES MELLITUS

REACTIONS (14)
  - Dizziness [None]
  - Malaise [None]
  - Headache [None]
  - Feeling hot [None]
  - Throat irritation [None]
  - Oropharyngeal pain [None]
  - Bronchitis [None]
  - Nasopharyngitis [None]
  - Temporomandibular joint syndrome [None]
  - Ear pain [None]
  - Ear discomfort [None]
  - Deafness [None]
  - Food allergy [None]
  - Memory impairment [None]
